FAERS Safety Report 6509340-3 (Version None)
Quarter: 2009Q4

REPORT INFORMATION
  Report Type: 
  Country: None (occurrence: None)
  Receive Date: 20091218
  Receipt Date: 20091218
  Transmission Date: 20100525
  Serious: No
  Sender: FDA-Public Use
  Company Number: None

PATIENT
  Age: 44 Year
  Sex: Female
  Weight: 115.6672 kg

DRUGS (2)
  1. NUVIGIL [Suspect]
     Indication: ATTENTION DEFICIT/HYPERACTIVITY DISORDER
     Dosage: 250 MG ONE TIME PER DAY PO, DAYS
     Route: 048
     Dates: start: 20091208, end: 20091212
  2. NUVIGIL [Suspect]
     Indication: SOMNOLENCE
     Dosage: 250 MG ONE TIME PER DAY PO, DAYS
     Route: 048
     Dates: start: 20091208, end: 20091212

REACTIONS (2)
  - OEDEMA PERIPHERAL [None]
  - RASH ERYTHEMATOUS [None]
